FAERS Safety Report 19629842 (Version 5)
Quarter: 2021Q4

REPORT INFORMATION
  Report Type: Report from Study
  Country: US (occurrence: US)
  Receive Date: 20210728
  Receipt Date: 20211112
  Transmission Date: 20220303
  Serious: No
  Sender: FDA-Public Use
  Company Number: NVSC2021US170005

PATIENT
  Sex: Female

DRUGS (1)
  1. MAYZENT [Suspect]
     Active Substance: SIPONIMOD
     Indication: Product used for unknown indication
     Dosage: 2 MG, QD
     Route: 048

REACTIONS (5)
  - Insomnia [Unknown]
  - Weight increased [Unknown]
  - COVID-19 [Unknown]
  - Chest pain [Unknown]
  - Dyspnoea [Unknown]
